FAERS Safety Report 8167373 (Version 4)
Quarter: 2012Q4

REPORT INFORMATION
  Report Type: 
  Country: US (occurrence: US)
  Receive Date: 20111004
  Receipt Date: 20121022
  Transmission Date: 20130627
  Serious: Yes (Other)
  Sender: FDA-Public Use
  Company Number: US-BAYER-2011-090374

PATIENT
  Age: 23 Year
  Sex: Female
  Weight: 72.11 kg

DRUGS (1)
  1. MIRENA [Suspect]
     Indication: CONTRACEPTION
     Dosage: 20 mcg/24hr, CONT
     Route: 015
     Dates: start: 20090708

REACTIONS (3)
  - Device dislocation [Not Recovered/Not Resolved]
  - Amenorrhoea [Recovered/Resolved]
  - Pregnancy with contraceptive device [None]
